FAERS Safety Report 6306928-X (Version None)
Quarter: 2009Q3

REPORT INFORMATION
  Report Type: 
  Country: None (occurrence: None)
  Receive Date: 20090812
  Receipt Date: 20090803
  Transmission Date: 20100115
  Serious: Yes (Hospitalization)
  Sender: FDA-Public Use
  Company Number: FR-WYE-H10500109

PATIENT
  Sex: Female

DRUGS (8)
  1. CORDARONE [Suspect]
     Dosage: UNKNOWN
     Route: 048
  2. CALCIDOSE [Suspect]
     Dosage: UNKNOWN
     Route: 048
     Dates: end: 20090101
  3. LANSOPRAZOLE [Suspect]
     Dosage: UNKNOWN
     Route: 048
  4. PREVISCAN [Suspect]
     Dosage: UNKNOWN
     Route: 048
  5. HEMIGOXINE NATIVELLE [Suspect]
     Dosage: UNKNOWN
     Route: 048
  6. COLCHIMAX [Suspect]
     Dosage: UNKNOWN
     Route: 048
  7. HYDROCORTISONE [Suspect]
     Dosage: UNKNOWN
     Route: 048
     Dates: start: 20080801
  8. ENDOXAN [Suspect]
     Indication: CREST SYNDROME
     Dosage: UNKNOWN
     Route: 048

REACTIONS (1)
  - IDIOPATHIC LENTICULAR MUCOCUTANEOUS PIGMENTATION [None]
